FAERS Safety Report 5628105-8 (Version None)
Quarter: 2008Q1

REPORT INFORMATION
  Report Type: 
  Country: None (occurrence: None)
  Receive Date: 20080215
  Receipt Date: 20080206
  Transmission Date: 20080703
  Serious: Yes (Death)
  Sender: FDA-Public Use
  Company Number: IT-ELI_LILLY_AND_COMPANY-EWC041141322

PATIENT
  Sex: Female
  Weight: 62 kg

DRUGS (7)
  1. FORTEO [Suspect]
     Indication: OSTEOPOROSIS
     Dosage: 20 UG, DAILY (1/D)
     Route: 058
     Dates: start: 20040614
  2. SINVACOR [Concomitant]
     Indication: HYPERCHOLESTEROLAEMIA
     Dosage: 20 MG, DAILY (1/D)
     Route: 048
     Dates: start: 19990101
  3. FOSICOMBI [Concomitant]
     Indication: HYPERTENSION
     Dosage: 1 UNK, WEEKLY (1/W)
     Route: 048
     Dates: start: 19990101
  4. DIDROGYL [Concomitant]
     Dosage: 7 DROPS, DAILY (1/D)
     Route: 048
     Dates: start: 20030701
  5. ALENDRONATE SODIUM [Concomitant]
     Dosage: UNK, UNKNOWN
     Dates: start: 20030701
  6. CALCIUM SANDOZ [Concomitant]
     Dosage: 1 D/F, DAILY (1/D)
     Route: 048
     Dates: start: 20030701
  7. DICLOFENAC SODIUM [Concomitant]
     Indication: BACK PAIN
     Dosage: UNK, AS NEEDED

REACTIONS (1)
  - SUDDEN DEATH [None]
